FAERS Safety Report 8020047-6 (Version None)
Quarter: 2011Q4

REPORT INFORMATION
  Report Type: 
  Country: None (occurrence: None)
  Receive Date: 20111227
  Receipt Date: 20111214
  Transmission Date: 20120403
  Serious: Yes (Disabling)
  Sender: FDA-Public Use
  Company Number: 216178

PATIENT
  Age: 75 Year
  Sex: Male
  Weight: 102.5 kg

DRUGS (1)
  1. INNOHEP [Suspect]
     Indication: ANTICOAGULANT THERAPY
     Dosage: (18000 IU), SUBCUTANEOUS
     Route: 058
     Dates: start: 20110913, end: 20110920

REACTIONS (1)
  - DEAFNESS [None]
